FAERS Safety Report 23261159 (Version 1)
Quarter: 2023Q4

REPORT INFORMATION
  Report Type: Spontaneous
  Country: US (occurrence: US)
  Receive Date: 20231205
  Receipt Date: 20231205
  Transmission Date: 20240109
  Serious: No
  Sender: FDA-Public Use
  Company Number: US-CELLTRION INC.-2023US008395

PATIENT

DRUGS (1)
  1. TRUXIMA [Suspect]
     Active Substance: RITUXIMAB-ABBS
     Indication: Rheumatoid arthritis
     Dosage: HE TAKES 1000 MG DAY 1 AND DAY 15 OF THE MONTH EVERY 6 MONTHS
     Dates: start: 20210701

REACTIONS (1)
  - Drug effect less than expected [Unknown]
